FAERS Safety Report 16045383 (Version 2)
Quarter: 2019Q2

REPORT INFORMATION
  Report Type: Report from Study
  Country: JP (occurrence: JP)
  Receive Date: 20190307
  Receipt Date: 20190422
  Transmission Date: 20190711
  Serious: Yes (Other)
  Sender: FDA-Public Use
  Company Number: JP-AMGEN-JPNNI2019034714

PATIENT
  Age: 85 Year
  Sex: Male
  Weight: 36.5 kg

DRUGS (7)
  1. P-TOL [SUCROFERRIC OXYHYDROXIDE] [Concomitant]
     Dosage: 750 MILLIGRAM, QD
     Route: 048
     Dates: start: 20190203
  2. KIKLIN [Concomitant]
     Active Substance: BIXALOMER
     Dosage: 750 MILLIGRAM, QD
     Route: 048
     Dates: start: 20181020, end: 20190202
  3. ALFACALCIDOL [Concomitant]
     Active Substance: ALFACALCIDOL
     Dosage: 0.5 MICROGRAM, QD
     Route: 048
     Dates: start: 20180329, end: 20180824
  4. P-TOL [SUCROFERRIC OXYHYDROXIDE] [Concomitant]
     Dosage: 750 MILLIGRAM, QD
     Route: 048
     Dates: end: 20181019
  5. ALFACALCIDOL [Concomitant]
     Active Substance: ALFACALCIDOL
     Dosage: 0.25 MICROGRAM, QD
     Route: 048
     Dates: start: 20180825
  6. ETELCALCETIDE [Suspect]
     Active Substance: ETELCALCETIDE
     Indication: HYPERPARATHYROIDISM SECONDARY
     Dosage: 5 MG, 3 TIMES/WK
     Route: 010
     Dates: start: 201802, end: 20180523
  7. TULOBUTEROL HYDROCHLORIDE [Suspect]
     Active Substance: TULOBUTEROL HYDROCHLORIDE
     Indication: EMPHYSEMA
     Dosage: UNK
     Route: 065
     Dates: start: 20180319, end: 20180328

REACTIONS (6)
  - Skin exfoliation [Recovering/Resolving]
  - Bronchitis [Recovering/Resolving]
  - Erythema [Recovering/Resolving]
  - Stenosis [Unknown]
  - Bronchitis [Recovering/Resolving]
  - Chest discomfort [Recovering/Resolving]

NARRATIVE: CASE EVENT DATE: 2018
